FAERS Safety Report 15089144 (Version 1)
Quarter: 2018Q2

REPORT INFORMATION
  Report Type: Spontaneous
  Country: US (occurrence: US)
  Receive Date: 20180629
  Receipt Date: 20180629
  Transmission Date: 20180711
  Serious: No
  Sender: FDA-Public Use
  Company Number: US-SA-2018SA137159

PATIENT
  Age: 64 Year
  Sex: Female
  Weight: 59.87 kg

DRUGS (3)
  1. GASTROCROM [Concomitant]
     Active Substance: CROMOLYN SODIUM
     Indication: ABDOMINAL DISCOMFORT
     Route: 065
  2. SYNTHROID [Concomitant]
     Active Substance: LEVOTHYROXINE SODIUM
     Dosage: UNK UNK,UNK
     Route: 065
  3. XYZAL ALLERGY 24HR [Suspect]
     Active Substance: LEVOCETIRIZINE DIHYDROCHLORIDE
     Dosage: UNK UNK,UNK
     Route: 065
     Dates: start: 20180509, end: 20180509

REACTIONS (1)
  - Fatigue [Unknown]

NARRATIVE: CASE EVENT DATE: 20180509
